FAERS Safety Report 5145980-4 (Version None)
Quarter: 2006Q4

REPORT INFORMATION
  Report Type: 
  Country: None (occurrence: None)
  Receive Date: 20061106
  Receipt Date: 20061106
  Transmission Date: 20070319
  Serious: Yes (Hospitalization)
  Sender: FDA-Public Use
  Company Number: None

PATIENT
  Age: 63 Year
  Sex: Male
  Weight: 104 kg

DRUGS (8)
  1. BORTEZOMIB [Suspect]
     Indication: MANTLE CELL LYMPHOMA
     Dosage: 3 MG D1 AND 4 IV
     Route: 042
     Dates: start: 20061018
  2. BORTEZOMIB [Suspect]
     Indication: MANTLE CELL LYMPHOMA
     Dosage: 3 MG D1 AND 4 IV
     Route: 042
     Dates: start: 20061021
  3. CYCLOPHOSPHAMIDE [Suspect]
     Dosage: 90 MG D1-3 IV
     Route: 042
     Dates: start: 20061018, end: 20061021
  4. RITUXAN [Suspect]
     Dosage: 830 MG IV D 1
     Route: 042
  5. DOXORUBICIN HCL [Suspect]
     Dosage: 99.5 MG CIV
     Route: 042
     Dates: start: 20061018
  6. DOXORUBICIN HCL [Suspect]
     Dosage: 99.5 MG CIV
     Route: 042
     Dates: start: 20061019
  7. DEXAMETHASONE TAB [Suspect]
     Dosage: 40  D1-4 IV
     Route: 042
     Dates: start: 20061018, end: 20061021
  8. VINCRISTINE [Suspect]
     Dosage: 1MG D1 AND 4 IV
     Route: 042

REACTIONS (3)
  - DECUBITUS ULCER [None]
  - PANCYTOPENIA [None]
  - PYREXIA [None]
